FAERS Safety Report 10258448 (Version 3)
Quarter: 2014Q3

REPORT INFORMATION
  Report Type: Report from Study
  Country: US (occurrence: US)
  Receive Date: 20140625
  Receipt Date: 20140729
  Transmission Date: 20150326
  Serious: Yes (Life-Threatening, Hospitalization)
  Sender: FDA-Public Use
  Company Number: US-BAYER-2014-028298

PATIENT
  Age: 55 Year
  Sex: Male
  Weight: 91 kg

DRUGS (8)
  1. COUMADIN [Concomitant]
     Active Substance: WARFARIN SODIUM
     Indication: PULMONARY HYPERTENSION
     Dosage: ADJUSTED DAILY
     Dates: start: 20131218, end: 20140510
  2. ADEMPAS [Suspect]
     Active Substance: RIOCIGUAT
     Indication: PULMONARY HAEMOSIDEROSIS
     Dosage: 0.5 MG, TID
     Route: 048
     Dates: start: 20131217, end: 20140510
  3. ADEMPAS [Suspect]
     Active Substance: RIOCIGUAT
     Indication: PULMONARY HAEMOSIDEROSIS
     Dosage: 1 MG, TID
     Route: 048
     Dates: start: 20140103
  4. ADEMPAS [Suspect]
     Active Substance: RIOCIGUAT
     Indication: PULMONARY HAEMOSIDEROSIS
     Dosage: 1.5 MG, TID
     Route: 048
  5. ADEMPAS [Suspect]
     Active Substance: RIOCIGUAT
     Indication: PULMONARY HAEMOSIDEROSIS
     Dosage: 2 MG, TID
     Route: 048
     Dates: start: 20140104
  6. ADEMPAS [Suspect]
     Active Substance: RIOCIGUAT
     Indication: PULMONARY HAEMOSIDEROSIS
     Dosage: 2.5 MG, TID
     Route: 048
     Dates: start: 20140401
  7. ADEMPAS [Suspect]
     Active Substance: RIOCIGUAT
     Indication: PULMONARY HAEMOSIDEROSIS
     Dosage: UNK
     Dates: end: 20140524
  8. ADEMPAS [Suspect]
     Active Substance: RIOCIGUAT
     Indication: PULMONARY HYPERTENSION
     Dosage: UNK
     Dates: start: 201312

REACTIONS (15)
  - Haemosiderosis [None]
  - Insomnia [None]
  - Musculoskeletal pain [None]
  - Dizziness postural [None]
  - Pain [None]
  - Nausea [None]
  - Chest pain [None]
  - Initial insomnia [None]
  - Depression [None]
  - Pulmonary haemorrhage [Recovered/Resolved]
  - Weight increased [None]
  - Oedema peripheral [None]
  - Gastrooesophageal reflux disease [None]
  - Neck pain [None]
  - Fatigue [None]

NARRATIVE: CASE EVENT DATE: 20140510
